FAERS Safety Report 23050671 (Version 2)
Quarter: 2023Q4

REPORT INFORMATION
  Report Type: Spontaneous
  Country: RO (occurrence: RO)
  Receive Date: 20231010
  Receipt Date: 20231017
  Transmission Date: 20240109
  Serious: Yes (Death, Life-Threatening, Hospitalization, Other)
  Sender: FDA-Public Use
  Company Number: RO-BRISTOL-MYERS SQUIBB COMPANY-2023-137709

PATIENT
  Age: 76 Year

DRUGS (6)
  1. AZACITIDINE [Suspect]
     Active Substance: AZACITIDINE
     Indication: Acute erythroid leukaemia
     Dosage: 100 MILLIGRAM,QD, FOR 5 DAYS 1ST CYCLE
     Route: 065
  2. AZACITIDINE [Suspect]
     Active Substance: AZACITIDINE
     Dosage: 100 MILLIGRAM,QD, 2ND CYCLE
     Route: 065
  3. AZACITIDINE [Suspect]
     Active Substance: AZACITIDINE
     Dosage: 100 MILLIGRAM,QD, 3RD CYCLE
     Route: 065
  4. AZACITIDINE [Suspect]
     Active Substance: AZACITIDINE
     Dosage: 100 MILLIGRAM,QD,4TH CYCLE
     Route: 065
  5. VENETOCLAX [Concomitant]
     Active Substance: VENETOCLAX
     Indication: Acute erythroid leukaemia
     Dosage: 100MG,QDREDUCED DOSE 100MG/DAY FOR 28 DAY 1CYCLE
     Route: 065
  6. VENETOCLAX [Concomitant]
     Active Substance: VENETOCLAX
     Dosage: 100 MILLIGRAM, QD, 2ND CYCLE
     Route: 065

REACTIONS (5)
  - Acute pulmonary oedema [Fatal]
  - Condition aggravated [Fatal]
  - Sepsis [Unknown]
  - Pancytopenia [Unknown]
  - Off label use [Unknown]
